FAERS Safety Report 4994199-6 (Version None)
Quarter: 2006Q2

REPORT INFORMATION
  Report Type: 
  Country: None (occurrence: None)
  Receive Date: 20060503
  Receipt Date: 20060420
  Transmission Date: 20061013
  Serious: Yes (Hospitalization, Other)
  Sender: FDA-Public Use
  Company Number: HQWYE887520APR06

PATIENT
  Age: 63 Year
  Sex: Female

DRUGS (4)
  1. PANTOPRAZOLE SODIUM [Suspect]
     Indication: ABDOMINAL PAIN UPPER
     Dosage: ^SOME/DAY 40 MG^
     Route: 048
     Dates: start: 20060322, end: 20060323
  2. PANTOPRAZOLE SODIUM [Suspect]
     Indication: GASTRIC ULCER
     Dosage: ^SOME/DAY 40 MG^
     Route: 048
     Dates: start: 20060322, end: 20060323
  3. SIMVASTATIN [Concomitant]
  4. OMEPRAZOLE [Concomitant]

REACTIONS (3)
  - ANAEMIA [None]
  - GASTRIC ULCER [None]
  - RENAL FAILURE ACUTE [None]
